FAERS Safety Report 9204530 (Version 1)
Quarter: 2013Q2

REPORT INFORMATION
  Report Type: Report from Study
  Country: GB (occurrence: GB)
  Receive Date: 20130402
  Receipt Date: 20130402
  Transmission Date: 20140414
  Serious: Yes (Death, Other)
  Sender: FDA-Public Use
  Company Number: GB-ROCHE-1204645

PATIENT
  Sex: 0

DRUGS (2)
  1. CAPECITABINE [Suspect]
     Indication: PANCREATIC CARCINOMA
     Dosage: FOR DAYS 1 TO 21 OF EACH 28-DAY CYCLE
     Route: 048
  2. GEMCITABINE [Suspect]
     Indication: PANCREATIC CARCINOMA
     Dosage: ON DAYS 1, 8, AND 15 OF A 28-DAY CYCLE
     Route: 042

REACTIONS (13)
  - Pneumonitis [Fatal]
  - Palmar-plantar erythrodysaesthesia syndrome [Unknown]
  - Lethargy [Unknown]
  - Diarrhoea [Unknown]
  - Febrile neutropenia [Unknown]
  - Thrombocytopenia [Unknown]
  - Stomatitis [Unknown]
  - Neutropenia [Unknown]
  - Rash [Unknown]
  - Anaemia [Unknown]
  - Constipation [Unknown]
  - Liver function test abnormal [Unknown]
  - Chest pain [Unknown]
